FAERS Safety Report 9067279 (Version 2)
Quarter: 2013Q1

REPORT INFORMATION
  Report Type: Report from Study
  Country: DE (occurrence: DE)
  Receive Date: 20130214
  Receipt Date: 20130328
  Transmission Date: 20140127
  Serious: Yes (Hospitalization)
  Sender: FDA-Public Use
  Company Number: DE-EISAI INC-E7389-03524-CLI-DE

PATIENT
  Age: 67 None
  Sex: Female
  Weight: 94 kg

DRUGS (4)
  1. HALAVEN [Suspect]
     Indication: BREAST CANCER METASTATIC
     Route: 041
     Dates: start: 20130122, end: 20130122
  2. LAPATINIB [Suspect]
     Indication: BREAST CANCER METASTATIC
     Route: 048
     Dates: start: 20130122
  3. METOPROLOL [Concomitant]
     Dates: start: 2011
  4. VALSARTAN [Concomitant]
     Dates: start: 2006

REACTIONS (1)
  - Pleural effusion [Recovering/Resolving]
